FAERS Safety Report 13941415 (Version 1)
Quarter: 2017Q3

REPORT INFORMATION
  Report Type: Spontaneous
  Country: US (occurrence: US)
  Receive Date: 20170906
  Receipt Date: 20170906
  Transmission Date: 20171127
  Serious: No
  Sender: FDA-Public Use
  Company Number: US-BAYER-2017-161944

PATIENT
  Sex: Female

DRUGS (1)
  1. MIRALAX [Suspect]
     Active Substance: POLYETHYLENE GLYCOL 3350
     Indication: GASTROINTESTINAL DISORDER
     Dosage: I HAVE BEEN USING HALF A CAPFUL.
     Route: 048

REACTIONS (5)
  - Underdose [Unknown]
  - Intentional product use issue [Unknown]
  - Prescribed underdose [Unknown]
  - Abdominal pain upper [Unknown]
  - Diarrhoea [Unknown]
